FAERS Safety Report 23180036 (Version 4)
Quarter: 2024Q1

REPORT INFORMATION
  Report Type: Report from Study
  Country: US (occurrence: US)
  Receive Date: 20231114
  Receipt Date: 20240125
  Transmission Date: 20240409
  Serious: No
  Sender: FDA-Public Use
  Company Number: US-002147023-NVSC2023US242020

PATIENT
  Sex: Female

DRUGS (2)
  1. ILARIS [Suspect]
     Active Substance: CANAKINUMAB
     Indication: Still^s disease
     Dosage: 150 MG/KG, BIW
     Route: 058
     Dates: start: 20230901
  2. ILARIS [Suspect]
     Active Substance: CANAKINUMAB
     Dosage: 150 MG/KG, BIW
     Route: 058

REACTIONS (2)
  - Fatigue [Unknown]
  - Gastroenteritis viral [Unknown]
